FAERS Safety Report 6119865-0 (Version None)
Quarter: 2009Q1

REPORT INFORMATION
  Report Type: 
  Country: None (occurrence: None)
  Receive Date: 20090316
  Receipt Date: 20090309
  Transmission Date: 20090719
  Serious: Yes (Other)
  Sender: FDA-Public Use
  Company Number: DE-VALEANT-2009VX000417

PATIENT
  Age: 74 Year
  Sex: Male

DRUGS (7)
  1. TOLCAPONE [Suspect]
     Indication: PARKINSON'S DISEASE
     Route: 048
     Dates: start: 20081204, end: 20081209
  2. REQUIP [Suspect]
     Indication: PARKINSON'S DISEASE
     Route: 065
  3. LEVODOPA [Suspect]
     Indication: PARKINSON'S DISEASE
     Route: 065
     Dates: start: 19960101, end: 20081203
  4. LEVODOPA [Suspect]
     Route: 065
     Dates: start: 20081204, end: 20081217
  5. LEVODOPA [Suspect]
     Route: 065
     Dates: start: 20081218
  6. AVODART [Concomitant]
     Route: 065
  7. ENTACAPONE [Concomitant]
     Route: 065
     Dates: end: 20081209

REACTIONS (1)
  - DELIRIUM [None]
